FAERS Safety Report 19706729 (Version 1)
Quarter: 2021Q3

REPORT INFORMATION
  Report Type: Spontaneous
  Country: US (occurrence: US)
  Receive Date: 20210816
  Receipt Date: 20210816
  Transmission Date: 20211014
  Serious: No
  Sender: FDA-Public Use
  Company Number: None

PATIENT

DRUGS (14)
  1. LOVASTATIN. [Concomitant]
     Active Substance: LOVASTATIN
  2. TORSEMIDE. [Concomitant]
     Active Substance: TORSEMIDE
  3. PREDNISONE. [Concomitant]
     Active Substance: PREDNISONE
  4. RANITIDINE HYDROCHLORIDE. [Concomitant]
     Active Substance: RANITIDINE HYDROCHLORIDE
  5. OFEV [Concomitant]
     Active Substance: NINTEDANIB
  6. CELLCEPT [Concomitant]
     Active Substance: MYCOPHENOLATE MOFETIL\MYCOPHENOLATE MOFETIL HYDROCHLORIDE
  7. ALYQ [Concomitant]
     Active Substance: TADALAFIL
  8. POTASSIUM CITRATE ER [Concomitant]
     Active Substance: POTASSIUM CITRATE
  9. LOSARTAN POTASSIUM. [Concomitant]
     Active Substance: LOSARTAN POTASSIUM
  10. VENTOLIN HFA [Concomitant]
     Active Substance: ALBUTEROL SULFATE
  11. LETAIRIS [Concomitant]
     Active Substance: AMBRISENTAN
  12. ORENITRAM [Concomitant]
     Active Substance: TREPROSTINIL
  13. AMBRISENTAN [Suspect]
     Active Substance: AMBRISENTAN
     Indication: PULMONARY ARTERIAL HYPERTENSION
     Route: 048
  14. OMEPRAZOLE. [Concomitant]
     Active Substance: OMEPRAZOLE

REACTIONS (7)
  - Therapy interrupted [None]
  - Insurance issue [None]
  - Dyspnoea [None]
  - Pulmonary hypertension [None]
  - Heart rate increased [None]
  - Symptom recurrence [None]
  - Adverse drug reaction [None]
